FAERS Safety Report 21798981 (Version 4)
Quarter: 2023Q2

REPORT INFORMATION
  Report Type: Report from Study
  Country: CO (occurrence: CO)
  Receive Date: 20221230
  Receipt Date: 20230518
  Transmission Date: 20230721
  Serious: Yes (Life-Threatening, Hospitalization, Other)
  Sender: FDA-Public Use
  Company Number: CO-ABBVIE-4252908

PATIENT
  Sex: Female
  Weight: 44 kg

DRUGS (3)
  1. HUMIRA [Suspect]
     Active Substance: ADALIMUMAB
     Indication: Rheumatoid arthritis
     Dosage: FORM STRENGTH 40 MILLIGRAM; LAST APPLICATION RECORDED IN THE SYSTEM ON 16 SEP 2022, HOWEVER, FAMI...
     Route: 058
     Dates: end: 202211
  2. HUMIRA [Suspect]
     Active Substance: ADALIMUMAB
  3. LOSARTAN [Concomitant]
     Active Substance: LOSARTAN
     Indication: Product used for unknown indication
     Dosage: AS REQUIRED ACCORDING TO THE PRESSURE?START DATE AROUND 5 YEARS AGO

REACTIONS (11)
  - Respiratory disorder [Recovering/Resolving]
  - Haemoptysis [Recovering/Resolving]
  - Dysphonia [Recovering/Resolving]
  - Osteoarthritis [Not Recovered/Not Resolved]
  - Headache [Recovering/Resolving]
  - Pain in extremity [Not Recovered/Not Resolved]
  - Pain [Recovering/Resolving]
  - Osteoporosis [Not Recovered/Not Resolved]
  - Influenza like illness [Recovering/Resolving]
  - Coagulopathy [Not Recovered/Not Resolved]
  - Lung disorder [Recovering/Resolving]

NARRATIVE: CASE EVENT DATE: 20190101
